FAERS Safety Report 4686809-8 (Version None)
Quarter: 2005Q2

REPORT INFORMATION
  Report Type: 
  Country: None (occurrence: None)
  Receive Date: 20050608
  Receipt Date: 20050329
  Transmission Date: 20051028
  Serious: Yes (Hospitalization)
  Sender: FDA-Public Use
  Company Number: 10744

PATIENT
  Age: 41 Year
  Sex: Female

DRUGS (7)
  1. ETOPOSIDE [Suspect]
  2. CYTARABINE [Suspect]
  3. ALEMTUZUMAB [Suspect]
     Dosage: 20 MG
  4. MELPHALAN [Suspect]
  5. CARMUSTINE [Concomitant]
  6. CYCLOSPORINE [Concomitant]
  7. METHOTREXATE [Concomitant]

REACTIONS (6)
  - ANAEMIA HAEMOLYTIC AUTOIMMUNE [None]
  - AUTOIMMUNE THROMBOCYTOPENIA [None]
  - JAUNDICE [None]
  - POLYCHROMASIA [None]
  - RETICULOCYTOSIS [None]
  - SPHEROCYTIC ANAEMIA [None]
